FAERS Safety Report 6787522-3 (Version None)
Quarter: 2010Q2

REPORT INFORMATION
  Report Type: 
  Country: None (occurrence: None)
  Receive Date: 20100623
  Receipt Date: 20080710
  Transmission Date: 20101027
  Serious: No
  Sender: FDA-Public Use
  Company Number: US-PFIZER INC-2006149871

PATIENT
  Age: 14 Year
  Sex: Male

DRUGS (2)
  1. GEODON [Suspect]
     Route: 048
     Dates: start: 20080701, end: 20080706
  2. EFFEXOR [Interacting]

REACTIONS (2)
  - DRUG INTERACTION [None]
  - DYSTONIA [None]
